FAERS Safety Report 7481751-1 (Version None)
Quarter: 2011Q2

REPORT INFORMATION
  Report Type: 
  Country: None (occurrence: None)
  Receive Date: 20110516
  Receipt Date: 20110502
  Transmission Date: 20111010
  Serious: Yes (Death)
  Sender: FDA-Public Use
  Company Number: B0714739A

PATIENT
  Sex: Male

DRUGS (5)
  1. TRUVADA [Concomitant]
     Route: 048
     Dates: start: 20080508, end: 20081221
  2. CELSENTRI [Concomitant]
     Route: 048
     Dates: start: 20080131, end: 20081221
  3. SELZENTRY [Suspect]
     Indication: HIV INFECTION
     Dates: end: 20060901
  4. REYATAZ [Concomitant]
     Route: 048
     Dates: start: 20051024, end: 20081221
  5. ISENTRESS [Concomitant]
     Route: 048
     Dates: start: 20080131, end: 20081221

REACTIONS (1)
  - INTERSTITIAL LUNG DISEASE [None]
